FAERS Safety Report 9769308 (Version 5)
Quarter: 2014Q2

REPORT INFORMATION
  Report Type: Spontaneous
  Country: US (occurrence: US)
  Receive Date: 20131218
  Receipt Date: 20140415
  Transmission Date: 20141212
  Serious: Yes (Other)
  Sender: FDA-Public Use
  Company Number: US-BEH-2013034485

PATIENT
  Age: 56 Year
  Sex: Female
  Weight: 117 kg

DRUGS (53)
  1. HIZENTRA [Suspect]
     Dosage: STARTED  DEC-2013;OVER 1-2 HOURS VIA 3-4 SITES
     Route: 058
  2. HIZENTRA [Suspect]
     Indication: IMMUNODEFICIENCY COMMON VARIABLE
     Dosage: OVER 1-2 HOURS VIA 3-4 SITES
     Route: 058
  3. HIZENTRA [Suspect]
     Dosage: IN 6 SITES
     Route: 058
  4. HIZENTRA [Suspect]
     Indication: PRIMARY IMMUNODEFICIENCY SYNDROME
     Dosage: IN 4 SITES
     Route: 058
     Dates: start: 20130228, end: 20130228
  5. HIZENTRA [Suspect]
     Route: 058
  6. HIZENTRA [Suspect]
     Route: 058
  7. HIZENTRA [Suspect]
     Dosage: 4 GM 20 ML VIAL; 1-6 SITES /1-2 HOURS
     Route: 058
  8. HIZENTRA [Suspect]
     Route: 058
  9. HIZENTRA [Suspect]
     Dosage: 4 GM 20 ML VIAL
     Route: 058
  10. HIZENTRA [Suspect]
     Dosage: 1 GM 5 ML VIAL
     Route: 058
  11. HCTZ [Concomitant]
  12. CELEXA [Concomitant]
  13. TRAMADOL [Concomitant]
  14. DIPHENHYDRAMINE [Concomitant]
  15. LIDOCAINE/PRILOCAINE [Concomitant]
  16. EPI-PEN [Concomitant]
  17. CENTRUM [Concomitant]
  18. VOLTAREN 1% GEL [Concomitant]
  19. GABAPENTIN [Concomitant]
  20. FLONASE [Concomitant]
     Dosage: 0.05%
     Route: 045
  21. VENTOLIN [Concomitant]
     Dosage: 90 MCG
     Route: 055
  22. ASPIRIN [Concomitant]
  23. SYMBICORT [Concomitant]
     Dosage: 160-4.5 MCG
     Route: 055
  24. ALPRAZOLAM [Concomitant]
  25. LEVOTHYROXINE [Concomitant]
  26. ALBUTEROL [Concomitant]
     Dosage: 0.83%
     Route: 055
  27. VITAMIN B COMPLEX [Concomitant]
  28. ESTER-C [Concomitant]
  29. CALCIUM [Concomitant]
  30. TOPAMAX [Concomitant]
  31. ACIPHEX [Concomitant]
  32. ALEVE [Concomitant]
  33. FISH OIL [Concomitant]
  34. GLUCOSAMINE [Concomitant]
  35. VITAMIN D3 [Concomitant]
  36. PROZAC [Concomitant]
     Indication: DEPRESSION
  37. FLEXERIL [Concomitant]
  38. FIORICET [Concomitant]
     Indication: PREMEDICATION
  39. PULMICORT [Concomitant]
  40. EFFEXOR [Concomitant]
  41. PROMETHAZINE [Concomitant]
  42. BUTALBITAL [Concomitant]
  43. CENTRUM [Concomitant]
  44. VOLTAREN [Concomitant]
  45. ACETAMINOPHEN [Concomitant]
  46. CEFDINIR [Concomitant]
  47. VERAPAMIL [Concomitant]
  48. SULFAMETHOXAZOLE TMP DS [Concomitant]
  49. AYR [Concomitant]
     Route: 045
  50. DOXYCYCLINE [Concomitant]
  51. BUTALBI-ACETAMINOPHEN-CAFF [Concomitant]
  52. EPIPEN [Concomitant]
  53. VITAMINS [Concomitant]

REACTIONS (20)
  - Lung infection [Not Recovered/Not Resolved]
  - Sinusitis [Not Recovered/Not Resolved]
  - Upper respiratory tract congestion [Not Recovered/Not Resolved]
  - Dyspnoea [Unknown]
  - Productive cough [Unknown]
  - Headache [Recovering/Resolving]
  - Hypotension [Unknown]
  - Headache [Unknown]
  - Infusion site erythema [Unknown]
  - Infusion site swelling [Unknown]
  - Infusion site swelling [Unknown]
  - Pyrexia [Unknown]
  - Headache [Unknown]
  - Infusion site reaction [Not Recovered/Not Resolved]
  - Erythema [Not Recovered/Not Resolved]
  - Headache [Not Recovered/Not Resolved]
  - Infusion site pruritus [Unknown]
  - Peripheral swelling [Unknown]
  - Burning sensation [Unknown]
  - Hypoaesthesia [Unknown]
